FAERS Safety Report 22903982 (Version 2)
Quarter: 2023Q4

REPORT INFORMATION
  Report Type: Report from Study
  Country: US (occurrence: US)
  Receive Date: 20230905
  Receipt Date: 20231027
  Transmission Date: 20240109
  Serious: Yes (Life-Threatening, Hospitalization, Other)
  Sender: FDA-Public Use
  Company Number: US-ABBVIE-5392706

PATIENT
  Sex: Male
  Weight: 109 kg

DRUGS (10)
  1. RINVOQ [Suspect]
     Active Substance: UPADACITINIB
     Indication: Axial spondyloarthritis
     Route: 048
     Dates: start: 20230703
  2. RINVOQ [Suspect]
     Active Substance: UPADACITINIB
     Indication: Axial spondyloarthritis
     Route: 048
     Dates: start: 20230325, end: 20230627
  3. RINVOQ [Suspect]
     Active Substance: UPADACITINIB
     Indication: Axial spondyloarthritis
     Route: 048
  4. ELIQUIS [Concomitant]
     Active Substance: APIXABAN
     Indication: Anticoagulant therapy
     Route: 048
     Dates: start: 20190101
  5. HYDROCHLOROTHIAZIDE [Concomitant]
     Active Substance: HYDROCHLOROTHIAZIDE
     Indication: Hypertension
     Route: 048
     Dates: start: 20190101
  6. IRBESARTAN [Concomitant]
     Active Substance: IRBESARTAN
     Indication: Hypertension
     Route: 048
     Dates: start: 20190101
  7. MELOXICAM [Concomitant]
     Active Substance: MELOXICAM
     Indication: Arthritis
     Route: 048
     Dates: start: 20170101
  8. METOPROLOL SUCCINATE [Concomitant]
     Active Substance: METOPROLOL SUCCINATE
     Indication: Hypertension
     Route: 048
     Dates: start: 20190601
  9. PREDNISONE [Concomitant]
     Active Substance: PREDNISONE
     Indication: Arthritis
     Dosage: TIME INTERVAL: AS NECESSARY
     Route: 048
     Dates: start: 20170101
  10. PREDNISOLONE ACETATE [Concomitant]
     Active Substance: PREDNISOLONE ACETATE
     Indication: Eye swelling
     Dosage: 1%
     Dates: start: 20030101

REACTIONS (9)
  - Cholecystitis infective [Recovering/Resolving]
  - White blood cell count increased [Recovering/Resolving]
  - Dizziness [Unknown]
  - White blood cell count increased [Recovering/Resolving]
  - Vomiting [Unknown]
  - Axial spondyloarthritis [Not Recovered/Not Resolved]
  - Abdominal pain [Unknown]
  - Platelet count increased [Unknown]
  - Disorientation [Unknown]

NARRATIVE: CASE EVENT DATE: 20230101
